FAERS Safety Report 9829698 (Version 1)
Quarter: 2014Q1

REPORT INFORMATION
  Report Type: Spontaneous
  Country: ES (occurrence: ES)
  Receive Date: 20140120
  Receipt Date: 20140120
  Transmission Date: 20141002
  Serious: Yes (Hospitalization, Other)
  Sender: FDA-Public Use
  Company Number: ES-009507513-1401ESP006991

PATIENT
  Age: 73 Year
  Sex: Male

DRUGS (1)
  1. BCG LIVE [Suspect]
     Indication: BLADDER TRANSITIONAL CELL CARCINOMA

REACTIONS (4)
  - Multi-organ failure [Recovering/Resolving]
  - Sepsis [Recovering/Resolving]
  - Mechanical ventilation [Recovered/Resolved]
  - Granulomatous liver disease [Recovering/Resolving]
